FAERS Safety Report 13858676 (Version 1)
Quarter: 2017Q3

REPORT INFORMATION
  Report Type: Spontaneous
  Country: TR (occurrence: TR)
  Receive Date: 20170811
  Receipt Date: 20170811
  Transmission Date: 20171127
  Serious: Yes (Hospitalization)
  Sender: FDA-Public Use
  Company Number: TR-SUN PHARMACEUTICAL INDUSTRIES LTD-2017R1-146001

PATIENT
  Age: 7 Year
  Sex: Female

DRUGS (1)
  1. LEVETIRACETAM. [Suspect]
     Active Substance: LEVETIRACETAM
     Indication: SEIZURE
     Dosage: 200 MG/KG, DAILY
     Route: 065

REACTIONS (4)
  - Hyperreflexia [Recovered/Resolved]
  - Accidental overdose [Recovered/Resolved]
  - Extensor plantar response [Recovered/Resolved]
  - Clonus [Recovered/Resolved]
